FAERS Safety Report 5729542 (Version 8)
Quarter: 2020Q2

REPORT INFORMATION
  Report Type: Spontaneous
  Country: FR (occurrence: FR)
  Receive Date: 20050204
  Receipt Date: 20200612
  Transmission Date: 20200714
  Serious: Yes (Hospitalization, Other)
  Sender: FDA-Public Use
  Company Number: FR-JNJFOC-20050105891

PATIENT
  Age: 8 Year
  Sex: Female
  Weight: 24 kg

DRUGS (14)
  1. REMICADE [Suspect]
     Active Substance: INFLIXIMAB
     Route: 042
     Dates: start: 200408, end: 200408
  2. VEXOL [Concomitant]
     Active Substance: RIMEXOLONE
     Indication: UVEITIS
     Route: 047
  3. REMICADE [Suspect]
     Active Substance: INFLIXIMAB
     Route: 042
     Dates: start: 200410, end: 200410
  4. REMICADE [Suspect]
     Active Substance: INFLIXIMAB
     Route: 042
     Dates: start: 20050221, end: 20050221
  5. CALCIUM [Concomitant]
     Active Substance: CALCIUM
     Route: 048
  6. REMICADE [Suspect]
     Active Substance: INFLIXIMAB
     Route: 042
     Dates: start: 200405, end: 200405
  7. REMICADE [Suspect]
     Active Substance: INFLIXIMAB
     Route: 042
     Dates: start: 200407, end: 200407
  8. REMICADE [Suspect]
     Active Substance: INFLIXIMAB
     Route: 042
  9. REMICADE [Suspect]
     Active Substance: INFLIXIMAB
     Indication: JUVENILE IDIOPATHIC ARTHRITIS
     Route: 042
     Dates: start: 200401, end: 200401
  10. REMICADE [Suspect]
     Active Substance: INFLIXIMAB
     Route: 042
     Dates: start: 200412, end: 200412
  11. CORTANCYL [Concomitant]
     Active Substance: PREDNISONE
     Indication: UVEITIS
     Route: 048
     Dates: start: 200204
  12. GLUCONATE DE POTASSIUM [Concomitant]
     Active Substance: POTASSIUM GLUCONATE
  13. REMICADE [Suspect]
     Active Substance: INFLIXIMAB
     Route: 042
     Dates: start: 200403, end: 200403
  14. REMICADE [Suspect]
     Active Substance: INFLIXIMAB
     Indication: IRIDOCYCLITIS
     Route: 042
     Dates: start: 200402, end: 200402

REACTIONS (4)
  - Pyrexia [Recovered/Resolved]
  - Pancytopenia [Recovered/Resolved]
  - Visceral leishmaniasis [Recovered/Resolved]
  - Mucocutaneous leishmaniasis [Unknown]

NARRATIVE: CASE EVENT DATE: 20050104
